FAERS Safety Report 7941127-7 (Version None)
Quarter: 2011Q4

REPORT INFORMATION
  Report Type: 
  Country: None (occurrence: None)
  Receive Date: 20111128
  Receipt Date: 20111004
  Transmission Date: 20120403
  Serious: No
  Sender: FDA-Public Use
  Company Number: US-BAYER-2011-022496

PATIENT
  Age: 20 Year
  Sex: Female
  Weight: 88.435 kg

DRUGS (1)
  1. MIRENA [Suspect]
     Indication: CONTRACEPTION
     Dosage: 20 MCG/24HR, CONT
     Route: 015

REACTIONS (3)
  - PELVIC PAIN [None]
  - OVARIAN CYST [None]
  - DEVICE DISLOCATION [None]
